FAERS Safety Report 8886005 (Version 1)
Quarter: 2012Q4

REPORT INFORMATION
  Report Type: 
  Country: US (occurrence: US)
  Receive Date: 20121105
  Receipt Date: 20121105
  Transmission Date: 20130627
  Serious: No
  Sender: FDA-Public Use
  Company Number: US-PFIZER INC-2012271899

PATIENT
  Age: 58 Year
  Sex: Male
  Weight: 126.98 kg

DRUGS (8)
  1. VIAGRA [Suspect]
     Indication: ERECTILE DYSFUNCTION
     Dosage: 50 mg, as needed
     Route: 048
     Dates: start: 201210, end: 201210
  2. VIAGRA [Suspect]
     Dosage: 100 mg(taking two tablets of 50mg at a time), as needed
     Route: 048
     Dates: start: 201210, end: 201210
  3. HUMULIN [Concomitant]
     Indication: DIABETES
     Dosage: 50 mg, 2x/day
  4. METFORMIN [Concomitant]
     Indication: DIABETES
     Dosage: 500 mg, 3x/day
  5. LOVASTATIN [Concomitant]
     Indication: HIGH CHOLESTEROL
     Dosage: 40 mg, 2x/day
  6. AMLODIPINE [Concomitant]
     Indication: BLOOD PRESSURE HIGH
     Dosage: 10 mg, 1x/day
  7. TRICOR [Concomitant]
     Dosage: 145 mg, 1x/day
  8. LOSARTAN [Concomitant]
     Indication: BLOOD PRESSURE HIGH
     Dosage: 50 mg, 1x/day

REACTIONS (1)
  - Drug ineffective [Unknown]
